FAERS Safety Report 18137224 (Version 1)
Quarter: 2020Q3

REPORT INFORMATION
  Report Type: Spontaneous
  Country: RO (occurrence: RO)
  Receive Date: 20200811
  Receipt Date: 20200811
  Transmission Date: 20201103
  Serious: Yes (Death, Other)
  Sender: FDA-Public Use
  Company Number: RO-BAUSCH-BL-2020-022423

PATIENT
  Age: 70 Year
  Sex: Male

DRUGS (18)
  1. DOXORUBICIN [Suspect]
     Active Substance: DOXORUBICIN
     Indication: CUTANEOUS LYMPHOMA
  2. PREDNISONE. [Suspect]
     Active Substance: PREDNISONE
     Indication: CUTANEOUS LYMPHOMA
  3. DEXAMETHASONE. [Suspect]
     Active Substance: DEXAMETHASONE
     Indication: CUTANEOUS LYMPHOMA
  4. VINCRISTINE [Suspect]
     Active Substance: VINCRISTINE
     Indication: DIFFUSE LARGE B-CELL LYMPHOMA STAGE II
     Dosage: R?CHOP REGIMEN,SIX COURSES
     Route: 065
     Dates: start: 2017
  5. CISPLATIN. [Suspect]
     Active Substance: CISPLATIN
     Indication: CUTANEOUS LYMPHOMA
  6. PREDNISONE. [Suspect]
     Active Substance: PREDNISONE
     Indication: DIFFUSE LARGE B-CELL LYMPHOMA STAGE II
     Dosage: R?CHOP REGIMEN, SIX COURSES
     Route: 065
     Dates: start: 2017
  7. CYCLOPHOSPHAMIDE. [Suspect]
     Active Substance: CYCLOPHOSPHAMIDE
     Indication: DIFFUSE LARGE B-CELL LYMPHOMA STAGE II
     Dosage: R?CHOP REGIMEN, SIX COURSES
     Route: 065
     Dates: start: 2017
  8. CISPLATIN. [Suspect]
     Active Substance: CISPLATIN
     Indication: DIFFUSE LARGE B-CELL LYMPHOMA STAGE II
     Dosage: R?DHAP REGIMEN
     Route: 065
     Dates: start: 2018
  9. GRANULOCYTE GROWTH FACTOR [Suspect]
     Active Substance: GRANULOCYTE COLONY-STIMULATING FACTOR NOS
     Indication: NEOPLASM PROPHYLAXIS
     Route: 065
     Dates: start: 2018
  10. METHOTREXATE. [Suspect]
     Active Substance: METHOTREXATE
     Indication: NEOPLASM PROPHYLAXIS
     Route: 037
     Dates: start: 2017
  11. RITUXIMAB. [Suspect]
     Active Substance: RITUXIMAB
     Indication: DIFFUSE LARGE B-CELL LYMPHOMA STAGE II
     Dosage: R?CHOP REGIMEN, SIX COURSES
     Route: 065
     Dates: start: 2017
  12. RITUXIMAB. [Suspect]
     Active Substance: RITUXIMAB
     Indication: CUTANEOUS LYMPHOMA
     Dosage: R?DHAP REGIMEN
     Route: 065
     Dates: start: 2018
  13. CYTARABINE. [Suspect]
     Active Substance: CYTARABINE
     Indication: DIFFUSE LARGE B-CELL LYMPHOMA STAGE II
     Dosage: R?DHAP REGIMEN
     Route: 065
     Dates: start: 2018
  14. CYCLOPHOSPHAMIDE. [Suspect]
     Active Substance: CYCLOPHOSPHAMIDE
     Indication: CUTANEOUS LYMPHOMA
  15. DEXAMETHASONE. [Suspect]
     Active Substance: DEXAMETHASONE
     Indication: DIFFUSE LARGE B-CELL LYMPHOMA STAGE II
     Dosage: R?DHAP REGIMEN
     Route: 065
     Dates: start: 2018
  16. CYTARABINE. [Suspect]
     Active Substance: CYTARABINE
     Indication: CUTANEOUS LYMPHOMA
  17. DOXORUBICIN [Suspect]
     Active Substance: DOXORUBICIN
     Indication: DIFFUSE LARGE B-CELL LYMPHOMA STAGE II
     Dosage: R?CHOP REGIMEN, SIX COURSES
     Route: 065
     Dates: start: 2017
  18. VINCRISTINE [Suspect]
     Active Substance: VINCRISTINE
     Indication: CUTANEOUS LYMPHOMA

REACTIONS (7)
  - Diffuse large B-cell lymphoma stage II [Fatal]
  - Toxicity to various agents [Unknown]
  - Cardiac failure [Fatal]
  - Acute myocardial infarction [Fatal]
  - Disease progression [Fatal]
  - Cutaneous lymphoma [Fatal]
  - Acute kidney injury [Unknown]

NARRATIVE: CASE EVENT DATE: 2018
